FAERS Safety Report 11332726 (Version 1)
Quarter: 2015Q3

REPORT INFORMATION
  Report Type: Spontaneous
  Country: US (occurrence: US)
  Receive Date: 20150803
  Receipt Date: 20150803
  Transmission Date: 20151125
  Serious: Yes (Other)
  Sender: FDA-Public Use
  Company Number: US-BAYER-2015-391677

PATIENT
  Age: 30 Year
  Sex: Male
  Weight: 59 kg

DRUGS (1)
  1. COPPERTONE [Suspect]
     Active Substance: OCTINOXATE\OCTOCRYLENE
     Dosage: 1 DF, PRN
     Route: 061
     Dates: start: 20150611, end: 20150706

REACTIONS (4)
  - Upper extremity mass [Recovered/Resolved]
  - Mass [Recovered/Resolved]
  - Chemical injury [Recovered/Resolved]
  - Hair injury [Recovered/Resolved]

NARRATIVE: CASE EVENT DATE: 20150611
